FAERS Safety Report 9804545 (Version 1)
Quarter: 2014Q1

REPORT INFORMATION
  Report Type: Spontaneous
  Country: GB (occurrence: GB)
  Receive Date: 20140108
  Receipt Date: 20140108
  Transmission Date: 20141002
  Serious: Yes (Hospitalization)
  Sender: FDA-Public Use
  Company Number: GB-WATSON-2013-24057

PATIENT
  Age: 90 Year
  Sex: Female
  Weight: 58 kg

DRUGS (7)
  1. BENDROFLUMETHIAZIDE (UNKNOWN) [Suspect]
     Indication: HYPERTENSION
     Dosage: 2.5 MG, Q24H
     Route: 048
     Dates: end: 20131130
  2. LISINOPRIL (UNKNOWN) [Suspect]
     Indication: HYPERTENSION
     Dosage: 10 MG, Q24H
     Route: 048
     Dates: end: 20131130
  3. BECLOMETASONE [Concomitant]
     Indication: CHRONIC OBSTRUCTIVE PULMONARY DISEASE
     Dosage: 100 MICROGRAMS TWICE DAILY
     Route: 055
  4. SALBUTAMOL [Concomitant]
     Indication: CHRONIC OBSTRUCTIVE PULMONARY DISEASE
     Dosage: 100 MICROGRAMS, AS REQUIRED
     Route: 055
  5. TERBINAFINE [Concomitant]
     Indication: FUNGAL SKIN INFECTION
     Dosage: 250 MG, BID
     Route: 048
  6. LAXIDO [Concomitant]
     Indication: PRODUCT USED FOR UNKNOWN INDICATION
     Dosage: 3 TIMES A DAY, AS REQUIRED
     Route: 048
  7. AMOXICILLIN [Concomitant]
     Indication: LOWER RESPIRATORY TRACT INFECTION
     Dosage: 500 MG, TID
     Route: 048
     Dates: start: 20131129

REACTIONS (1)
  - Hyponatraemia [Recovering/Resolving]
